FAERS Safety Report 19674719 (Version 3)
Quarter: 2021Q3

REPORT INFORMATION
  Report Type: Spontaneous
  Country: US (occurrence: US)
  Receive Date: 20210809
  Receipt Date: 20210827
  Transmission Date: 20211014
  Serious: Yes (Other)
  Sender: FDA-Public Use
  Company Number: US-BAYER-2021-187596

PATIENT
  Age: 58 Year
  Sex: Male

DRUGS (2)
  1. KOGENATE FS [Suspect]
     Active Substance: ANTIHEMOPHILIC FACTOR, HUMAN RECOMBINANT
     Dosage: 3 DF; USED 3 DOSES SO FAR FOR SKIN BIOPSY
     Route: 042
     Dates: start: 2021
  2. KOGENATE FS [Suspect]
     Active Substance: ANTIHEMOPHILIC FACTOR, HUMAN RECOMBINANT
     Dosage: 4200 U, UNK
     Route: 042

REACTIONS (1)
  - Biopsy skin [None]

NARRATIVE: CASE EVENT DATE: 20210729
